FAERS Safety Report 12068961 (Version 1)
Quarter: 2016Q1

REPORT INFORMATION
  Report Type: Spontaneous
  Country: NO (occurrence: NO)
  Receive Date: 20160211
  Receipt Date: 20160211
  Transmission Date: 20160526
  Serious: Yes (Hospitalization)
  Sender: FDA-Public Use
  Company Number: NO-GALDERMA-NO16000717

PATIENT
  Age: 43 Year
  Sex: Male

DRUGS (2)
  1. ERY-MAX [Suspect]
     Active Substance: ERYTHROMYCIN
     Route: 048
     Dates: start: 20151022, end: 20151104
  2. ORACEA [Suspect]
     Active Substance: DOXYCYCLINE
     Indication: PRODUCT USED FOR UNKNOWN INDICATION
     Route: 048
     Dates: start: 20150119, end: 20151231

REACTIONS (2)
  - Colitis [Recovering/Resolving]
  - Clostridium colitis [Recovering/Resolving]

NARRATIVE: CASE EVENT DATE: 201512
